FAERS Safety Report 5825654-4 (Version None)
Quarter: 2008Q3

REPORT INFORMATION
  Report Type: 
  Country: None (occurrence: None)
  Receive Date: 20080723
  Receipt Date: 20080716
  Transmission Date: 20090109
  Serious: Yes (Life-Threatening, Other)
  Sender: FDA-Public Use
  Company Number: 2008AL008323

PATIENT
  Age: 59 Year
  Sex: Female
  Weight: 108.4097 kg

DRUGS (1)
  1. DIGOXIN [Suspect]
     Indication: ATRIAL FIBRILLATION
     Dosage: DAILY PO
     Route: 048
     Dates: start: 20080206, end: 20080331

REACTIONS (15)
  - CARDIAC FLUTTER [None]
  - CONSTIPATION [None]
  - DYSPNOEA [None]
  - FAECES DISCOLOURED [None]
  - FATIGUE [None]
  - FEELING ABNORMAL [None]
  - HYPERTENSION [None]
  - INFLUENZA LIKE ILLNESS [None]
  - LETHARGY [None]
  - NAUSEA [None]
  - PALPITATIONS [None]
  - POLLAKIURIA [None]
  - SUPRAVENTRICULAR TACHYCARDIA [None]
  - VISION BLURRED [None]
  - VISUAL IMPAIRMENT [None]
